FAERS Safety Report 6270755-2 (Version None)
Quarter: 2009Q3

REPORT INFORMATION
  Report Type: 
  Country: None (occurrence: None)
  Receive Date: 20090714
  Receipt Date: 20090703
  Transmission Date: 20100115
  Serious: Yes (Other)
  Sender: FDA-Public Use
  Company Number: GXKR2009NO07787

PATIENT
  Age: 80 Year
  Sex: Female

DRUGS (4)
  1. SIMVASTATIN [Suspect]
     Dosage: ORAL
     Route: 048
     Dates: start: 20080101
  2. MICARDIS HCT [Concomitant]
  3. LIPITOR [Concomitant]
  4. COZAAR [Concomitant]

REACTIONS (3)
  - COGNITIVE DISORDER [None]
  - JOINT SWELLING [None]
  - MYALGIA [None]
